FAERS Safety Report 24787701 (Version 3)
Quarter: 2025Q3

REPORT INFORMATION
  Report Type: Spontaneous
  Country: EU (occurrence: EU)
  Receive Date: 20241230
  Receipt Date: 20250702
  Transmission Date: 20251021
  Serious: Yes (Death, Life-Threatening, Hospitalization, Other)
  Sender: SANDOZ
  Company Number: EU-VELOXIS PHARMACEUTICALS-2020VELES-000467

PATIENT
  Age: 65 Year
  Sex: Female

DRUGS (16)
  1. ACYCLOVIR [Suspect]
     Active Substance: ACYCLOVIR
     Indication: Infection prophylaxis
     Dosage: 1600 MG, QD
     Route: 065
  2. BUSULFAN [Suspect]
     Active Substance: BUSULFAN
     Indication: Bone marrow conditioning regimen
     Route: 065
  3. CYCLOPHOSPHAMIDE [Suspect]
     Active Substance: CYCLOPHOSPHAMIDE
     Indication: Prophylaxis against graft versus host disease
     Route: 065
  4. ENVARSUS XR [Suspect]
     Active Substance: TACROLIMUS
     Indication: Immunosuppressant drug therapy
     Route: 065
  5. ENVARSUS XR [Suspect]
     Active Substance: TACROLIMUS
     Indication: Stem cell transplant
  6. FLUCONAZOLE [Suspect]
     Active Substance: FLUCONAZOLE
     Indication: Infection prophylaxis
     Route: 065
  7. FLUDARABINE [Suspect]
     Active Substance: FLUDARABINE PHOSPHATE
     Indication: Bone marrow conditioning regimen
     Route: 065
  8. GENOXAL [Suspect]
     Active Substance: CYCLOPHOSPHAMIDE
     Indication: Prophylaxis against graft versus host disease
     Route: 065
  9. LEVOFLOXACIN [Suspect]
     Active Substance: LEVOFLOXACIN
     Indication: Infection prophylaxis
     Dosage: 500 MG/DL
     Route: 065
  10. MYCOPHENOLATE MOFETIL [Suspect]
     Active Substance: MYCOPHENOLATE MOFETIL
     Indication: Stem cell transplant
     Route: 065
  11. MYCOPHENOLATE MOFETIL [Suspect]
     Active Substance: MYCOPHENOLATE MOFETIL
     Indication: Immunosuppressant drug therapy
  12. MYCOPHENOLATE MOFETIL [Suspect]
     Active Substance: MYCOPHENOLATE MOFETIL
     Indication: Immunosuppression
  13. TACROLIMUS [Suspect]
     Active Substance: TACROLIMUS
     Indication: Immunosuppression
     Route: 065
  14. ACYCLOVIR [Concomitant]
     Active Substance: ACYCLOVIR
     Indication: Infection prophylaxis
     Dosage: 800 MG, BID
     Route: 065
  15. FLUCONAZOLE [Concomitant]
     Active Substance: FLUCONAZOLE
     Indication: Infection prophylaxis
     Route: 065
  16. LEVOFLOXACIN [Concomitant]
     Active Substance: LEVOFLOXACIN
     Indication: Infection prophylaxis
     Route: 065

REACTIONS (28)
  - Fungal infection [Fatal]
  - Gastrointestinal necrosis [Fatal]
  - Haemodynamic instability [Fatal]
  - Haematoma [Fatal]
  - Cerebral artery thrombosis [Fatal]
  - Hypoxic-ischaemic encephalopathy [Fatal]
  - Splenic vein thrombosis [Fatal]
  - Gastritis fungal [Fatal]
  - Cardio-respiratory arrest [Fatal]
  - Fat necrosis [Fatal]
  - Pancreatitis necrotising [Fatal]
  - Epistaxis [Fatal]
  - Thrombosis [Fatal]
  - Haemorrhage [Fatal]
  - Thrombocytopenia [Fatal]
  - Disseminated mucormycosis [Fatal]
  - Acquired macroglossia [Fatal]
  - Pulmonary infarction [Fatal]
  - Systemic mycosis [Fatal]
  - Neutropenia [Fatal]
  - Septic embolus [Fatal]
  - Pulmonary embolism [Fatal]
  - Ischaemic stroke [Fatal]
  - Cerebral infarction [Fatal]
  - Respiratory failure [Fatal]
  - Mucosal inflammation [Fatal]
  - Arteritis infective [Fatal]
  - Off label use [Unknown]
